FAERS Safety Report 17384422 (Version 1)
Quarter: 2020Q1

REPORT INFORMATION
  Report Type: Spontaneous
  Country: US (occurrence: US)
  Receive Date: 20200206
  Receipt Date: 20200206
  Transmission Date: 20200409
  Serious: Yes (Other)
  Sender: FDA-Public Use
  Company Number: US-ABBVIE-19K-163-2884420-00

PATIENT
  Age: 37 Year
  Sex: Female

DRUGS (2)
  1. EMTRIX [Concomitant]
     Indication: PRODUCT USED FOR UNKNOWN INDICATION
  2. HUMIRA [Suspect]
     Active Substance: ADALIMUMAB
     Indication: HIDRADENITIS
     Route: 058
     Dates: start: 20190808, end: 20190808

REACTIONS (2)
  - Device issue [Unknown]
  - Surgery [Unknown]

NARRATIVE: CASE EVENT DATE: 2019
